FAERS Safety Report 10165826 (Version 2)
Quarter: 2014Q2

REPORT INFORMATION
  Report Type: Spontaneous
  Country: US (occurrence: US)
  Receive Date: 20140510
  Receipt Date: 20140510
  Transmission Date: 20141212
  Serious: No
  Sender: FDA-Public Use
  Company Number: US-BRISTOL-MYERS SQUIBB COMPANY-19973387

PATIENT
  Age: 65 Year
  Sex: Female
  Weight: 84.8 kg

DRUGS (2)
  1. BYDUREON [Suspect]
     Indication: TYPE 2 DIABETES MELLITUS
     Dosage: EXPIRATION DATE:JUN2016
     Route: 058
     Dates: start: 20140105
  2. METFORMIN [Concomitant]

REACTIONS (4)
  - Injection site extravasation [Unknown]
  - Product quality issue [Unknown]
  - Injection site mass [Unknown]
  - Injection site pain [Unknown]
